FAERS Safety Report 9227321 (Version 1)
Quarter: 2013Q2

REPORT INFORMATION
  Report Type: Spontaneous
  Country: US (occurrence: US)
  Receive Date: 20130412
  Receipt Date: 20130412
  Transmission Date: 20140414
  Serious: Yes (Other)
  Sender: FDA-Public Use
  Company Number: PHEH2013US006661

PATIENT
  Age: 60 Year
  Sex: Male
  Weight: 103.4 kg

DRUGS (14)
  1. ZOMETA [Suspect]
     Indication: METASTASES TO BONE
     Dosage: 4 MG, EVERY 4 WEEKS
     Route: 042
     Dates: start: 20130114
  2. ACIPHEX [Concomitant]
     Dosage: UNK UKN, UNK
  3. CYMBALTA [Concomitant]
     Dosage: UNK UKN, UNK
  4. DECADRAN [Concomitant]
     Dosage: UNK UKN, UNK
  5. DEXEDRINE [Concomitant]
     Dosage: UNK UKN, UNK
  6. FLEXERIL [Concomitant]
     Dosage: UNK UKN, UNK
  7. LORTAB [Concomitant]
     Dosage: UNK UKN, UNK
  8. MS CONTIN [Concomitant]
     Dosage: UNK UKN, UNK
  9. NYSTATIN [Concomitant]
     Dosage: UNK UKN, UNK
  10. PREDNISONE [Concomitant]
     Dosage: UNK UKN, UNK
  11. SINGULAIR [Concomitant]
     Dosage: UNK UKN, UNK
  12. XANAX [Concomitant]
     Dosage: UNK UKN, UNK
  13. ZOFRAN [Concomitant]
     Dosage: UNK UKN, UNK
  14. ZYTIGA [Concomitant]
     Dosage: UNK UKN, UNK

REACTIONS (2)
  - Abdominal distension [Recovering/Resolving]
  - Fluid retention [Recovering/Resolving]
